FAERS Safety Report 5294429-X (Version None)
Quarter: 2007Q2

REPORT INFORMATION
  Report Type: 
  Country: None (occurrence: None)
  Receive Date: 20070409
  Receipt Date: 20070409
  Transmission Date: 20071010
  Serious: Yes (Other)
  Sender: FDA-Public Use
  Company Number: None

PATIENT
  Sex: Female
  Weight: 63.9572 kg

DRUGS (2)
  1. JANUVIA [Suspect]
     Indication: DIABETES MELLITUS NON-INSULIN-DEPENDENT
     Dosage: 100MG ONCE A DAY PO
     Route: 048
     Dates: start: 20070106, end: 20070303
  2. METFORMIN HCL [Concomitant]

REACTIONS (3)
  - ERYTHEMA [None]
  - IMPAIRED HEALING [None]
  - PAIN OF SKIN [None]
